FAERS Safety Report 15488028 (Version 2)
Quarter: 2018Q4

REPORT INFORMATION
  Report Type: Report from Study
  Country: MX (occurrence: GT)
  Receive Date: 20181011
  Receipt Date: 20181029
  Transmission Date: 20190205
  Serious: Yes (Other)
  Sender: FDA-Public Use
  Company Number: MX-SA-2018SA279057

PATIENT
  Age: 66 Year
  Sex: Female

DRUGS (1)
  1. GLIMEPIRIDE. [Suspect]
     Active Substance: GLIMEPIRIDE
     Indication: DIABETES MELLITUS
     Dosage: 1 DF, QD
     Route: 048
     Dates: start: 2013

REACTIONS (2)
  - Hyperglycaemia [Recovered/Resolved]
  - Neuropathy peripheral [Recovering/Resolving]

NARRATIVE: CASE EVENT DATE: 20180830
